FAERS Safety Report 8284811-0 (Version None)
Quarter: 2012Q2

REPORT INFORMATION
  Report Type: 
  Country: None (occurrence: None)
  Receive Date: 20120413
  Receipt Date: 20110321
  Transmission Date: 20120825
  Serious: No
  Sender: FDA-Public Use
  Company Number: US-ASTRAZENECA-2011SE16439

PATIENT
  Age: 46 Year
  Sex: Female

DRUGS (3)
  1. NEXIUM [Suspect]
     Route: 048
  2. PULMICORT FLEXHALER [Suspect]
     Route: 055
  3. RHINOCORT [Suspect]
     Route: 045

REACTIONS (6)
  - ASTHMA [None]
  - DRUG DOSE OMISSION [None]
  - GASTROOESOPHAGEAL REFLUX DISEASE [None]
  - ARTHRITIS [None]
  - GENERAL PHYSICAL HEALTH DETERIORATION [None]
  - CONDITION AGGRAVATED [None]
